FAERS Safety Report 5427834-9 (Version None)
Quarter: 2007Q3

REPORT INFORMATION
  Report Type: 
  Country: None (occurrence: None)
  Receive Date: 20070828
  Receipt Date: 20070814
  Transmission Date: 20080115
  Serious: Yes (Hospitalization)
  Sender: FDA-Public Use
  Company Number: US-ELI_LILLY_AND_COMPANY-US200708002909

PATIENT
  Sex: Female

DRUGS (2)
  1. FORTEO [Suspect]
     Dates: start: 20061001
  2. ACCUPRIL [Concomitant]
     Indication: HYPERTENSION

REACTIONS (6)
  - ASTHENIA [None]
  - BLOOD PRESSURE INCREASED [None]
  - BURNING SENSATION [None]
  - CONSTIPATION [None]
  - PRURITUS [None]
  - URINARY TRACT INFECTION [None]
